FAERS Safety Report 10222793 (Version 1)
Quarter: 2014Q2

REPORT INFORMATION
  Report Type: Spontaneous
  Country: DE (occurrence: DE)
  Receive Date: 20140606
  Receipt Date: 20140606
  Transmission Date: 20141212
  Serious: Yes (Other)
  Sender: FDA-Public Use
  Company Number: DE-ABBVIE-14P-062-1245568-00

PATIENT
  Sex: Male

DRUGS (2)
  1. HUMIRA [Suspect]
     Indication: PSORIATIC ARTHROPATHY
     Dates: start: 20090301, end: 20120905
  2. HUMIRA [Suspect]
     Dates: start: 20140430

REACTIONS (2)
  - Pyelocaliectasis [Not Recovered/Not Resolved]
  - Pain [Not Recovered/Not Resolved]
